FAERS Safety Report 6390436-4 (Version None)
Quarter: 2009Q4

REPORT INFORMATION
  Report Type: 
  Country: None (occurrence: None)
  Receive Date: 20091003
  Receipt Date: 20090921
  Transmission Date: 20100525
  Serious: Yes (Life-Threatening, Other)
  Sender: FDA-Public Use
  Company Number: OMPQ-NO-0909S-0818

PATIENT
  Age: 70 Year
  Sex: Female

DRUGS (1)
  1. OMNIPAQUE 300 [Suspect]
     Indication: ACUTE CORONARY SYNDROME
     Dosage: NR, SINGLE DOSE, UNK
     Dates: start: 20090909, end: 20090909

REACTIONS (7)
  - ARTERIOSPASM CORONARY [None]
  - CHEST PAIN [None]
  - DERMATITIS ALLERGIC [None]
  - ERYTHEMA [None]
  - HYPERSENSITIVITY [None]
  - NO THERAPEUTIC RESPONSE [None]
  - PRURITUS [None]
